FAERS Safety Report 8219714-0 (Version None)
Quarter: 2012Q1

REPORT INFORMATION
  Report Type: 
  Country: None (occurrence: None)
  Receive Date: 20120319
  Receipt Date: 20120307
  Transmission Date: 20120608
  Serious: Yes (Hospitalization)
  Sender: FDA-Public Use
  Company Number: BE-ROCHE-1013132

PATIENT
  Sex: Male
  Weight: 53.7 kg

DRUGS (6)
  1. CYCLOPHOSPHAMIDE [Suspect]
     Indication: B-CELL LYMPHOMA
     Dosage: LAST DOSE PRIOR TO SAE : 25 AUGUST 2011
     Route: 042
     Dates: start: 20110825
  2. MABTHERA [Suspect]
     Indication: B-CELL LYMPHOMA
     Dosage: NEXT DOSE DELAYED. LAST DOSE PRIOR TO SAE : 25 AUGUST 2011
     Route: 042
     Dates: start: 20110825
  3. PREDNISONE TAB [Suspect]
     Indication: B-CELL LYMPHOMA
     Dosage: LAST DOSE PRIOR TO SAE : 29 AUGUST 2011
     Route: 048
     Dates: start: 20110825
  4. DOXORUBICIN HCL [Suspect]
     Indication: B-CELL LYMPHOMA
     Dosage: LAST DOSE PRIOR TO SAE : 25 AUGUST 2011
     Route: 042
     Dates: start: 20110825
  5. VINCRISTINE [Suspect]
     Indication: B-CELL LYMPHOMA
     Dosage: LAST DOSE PRIOR TO SAE : 25 AUGUST 2011
     Route: 042
     Dates: start: 20110825
  6. FILGRASTIM [Suspect]
     Indication: B-CELL LYMPHOMA
     Dosage: LAST DOSE PRIOR TO SAE : 26 AUGUST 2011
     Route: 058
     Dates: start: 20110826

REACTIONS (2)
  - ABDOMINAL PAIN [None]
  - SMALL INTESTINAL OBSTRUCTION [None]
